FAERS Safety Report 20506015 (Version 3)
Quarter: 2022Q2

REPORT INFORMATION
  Report Type: Report from Study
  Country: US (occurrence: US)
  Receive Date: 20220223
  Receipt Date: 20220530
  Transmission Date: 20220721
  Serious: Yes (Other)
  Sender: FDA-Public Use
  Company Number: US-KOREA IPSEN Pharma-2022-04433

PATIENT
  Sex: Female

DRUGS (1)
  1. SOMATULINE DEPOT [Suspect]
     Active Substance: LANREOTIDE ACETATE
     Indication: Carcinoid tumour in the large intestine
     Dosage: 120 MG/0.5 ML
     Route: 058
     Dates: start: 20210517

REACTIONS (3)
  - Metastases to liver [Recovering/Resolving]
  - Fatigue [Recovering/Resolving]
  - Off label use [Unknown]
